FAERS Safety Report 5020064-4 (Version None)
Quarter: 2006Q2

REPORT INFORMATION
  Report Type: 
  Country: None (occurrence: None)
  Receive Date: 20060607
  Receipt Date: 20060519
  Transmission Date: 20061013
  Serious: Yes (Hospitalization)
  Sender: FDA-Public Use
  Company Number: JP-JPN-A200601645

PATIENT
  Age: 78 Year
  Sex: Male
  Weight: 42 kg

DRUGS (11)
  1. VALTREX [Suspect]
     Indication: KERATITIS HERPETIC
     Dosage: 500MG THREE TIMES PER DAY
     Route: 048
     Dates: start: 20060515, end: 20060516
  2. AMOBAN [Concomitant]
     Indication: INSOMNIA
     Dosage: 1 PER DAY
     Route: 048
  3. THYRADIN S [Concomitant]
     Indication: HYPOTHYROIDISM
     Dosage: 50MCG PER DAY
     Route: 048
  4. ASPIRIN [Concomitant]
     Indication: CEREBROVASCULAR DISORDER
     Dosage: 100MG PER DAY
     Route: 048
  5. ARTIST [Concomitant]
     Indication: HYPERTENSION
     Dosage: 10MG PER DAY
     Route: 048
  6. WYTENS [Concomitant]
     Indication: HYPERTENSION
     Dosage: 4MG PER DAY
     Route: 048
  7. CALTAN [Concomitant]
     Indication: HYPERPHOSPHATAEMIA
     Route: 048
  8. DIOVAN [Concomitant]
     Indication: HYPERTENSION
     Dosage: 80MG PER DAY
     Route: 048
  9. NORVASC [Concomitant]
     Indication: HYPERTENSION
     Dosage: 2.5MG PER DAY
     Route: 048
  10. RENIVACE [Concomitant]
     Indication: HYPERTENSION
     Dosage: 5MG PER DAY
     Route: 048
  11. TAKEPRON [Concomitant]
     Dosage: 15MG PER DAY
     Route: 048

REACTIONS (8)
  - ASTHENIA [None]
  - COMA [None]
  - DRUG PRESCRIBING ERROR [None]
  - DYSARTHRIA [None]
  - FEELING ABNORMAL [None]
  - NERVOUS SYSTEM DISORDER [None]
  - OVERDOSE [None]
  - SEDATION [None]
